FAERS Safety Report 8905190 (Version 2)
Quarter: 2012Q4

REPORT INFORMATION
  Report Type: 
  Country: US (occurrence: US)
  Receive Date: 20121112
  Receipt Date: 20121227
  Transmission Date: 20130627
  Serious: Yes (Other)
  Sender: FDA-Public Use
  Company Number: PHEH2012US022155

PATIENT
  Sex: Female

DRUGS (4)
  1. FOCALIN XR [Suspect]
     Indication: ATTENTION DEFICIT/HYPERACTIVITY DISORDER
     Dosage: 10 mg
     Route: 048
  2. FOCALIN XR [Suspect]
     Dosage: 20 mg
     Route: 048
  3. FOCALIN XR [Suspect]
     Dosage: 10 mg
     Route: 048
  4. ZOMIG [Suspect]
     Indication: MIGRAINE

REACTIONS (8)
  - Mitochondrial cytopathy [Unknown]
  - Flushing [Unknown]
  - Feeling abnormal [Unknown]
  - Malaise [Unknown]
  - Body temperature increased [Unknown]
  - Dry mouth [Unknown]
  - Attention deficit/hyperactivity disorder [Unknown]
  - Drug ineffective [Unknown]
